FAERS Safety Report 24813604 (Version 1)
Quarter: 2025Q1

REPORT INFORMATION
  Report Type: Spontaneous
  Country: US (occurrence: US)
  Receive Date: 20250107
  Receipt Date: 20250107
  Transmission Date: 20250409
  Serious: Yes (Other)
  Sender: NAARI PHARMA
  Company Number: US-NAARI PTE LIMITED-2025NP000001

PATIENT
  Age: 20 Year
  Sex: Female

DRUGS (1)
  1. NORGESTIMATE AND ETHINYL ESTRADIOL [Suspect]
     Active Substance: ETHINYL ESTRADIOL\NORGESTIMATE
     Indication: Oral contraception
     Route: 048

REACTIONS (1)
  - Colitis ischaemic [Recovered/Resolved]
